FAERS Safety Report 23676269 (Version 2)
Quarter: 2024Q2

REPORT INFORMATION
  Report Type: Spontaneous
  Country: US (occurrence: US)
  Receive Date: 20240327
  Receipt Date: 20240603
  Transmission Date: 20240717
  Serious: Yes (Other)
  Sender: FDA-Public Use
  Company Number: US-REGENERON PHARMACEUTICALS, INC.-2024-049707

PATIENT
  Sex: Female

DRUGS (1)
  1. EYLEA HD [Suspect]
     Active Substance: AFLIBERCEPT
     Indication: Product used for unknown indication
     Dosage: UNK (FORMULATION: HD VIAL)
     Route: 031

REACTIONS (5)
  - Intra-ocular injection complication [Unknown]
  - Metamorphopsia [Not Recovered/Not Resolved]
  - Pseudophakia [Unknown]
  - Visual impairment [Unknown]
  - Skin reaction [Unknown]

NARRATIVE: CASE EVENT DATE: 20240201
